FAERS Safety Report 25230389 (Version 1)
Quarter: 2025Q2

REPORT INFORMATION
  Report Type: Spontaneous
  Country: PR (occurrence: PR)
  Receive Date: 20250423
  Receipt Date: 20250423
  Transmission Date: 20250717
  Serious: Yes (Death, Hospitalization)
  Sender: MYLAN
  Company Number: PR-MYLANLABS-2025M1034542

PATIENT
  Age: 55 Year
  Sex: Female

DRUGS (8)
  1. VANCOMYCIN [Suspect]
     Active Substance: VANCOMYCIN
     Indication: Antibiotic therapy
  2. VANCOMYCIN [Suspect]
     Active Substance: VANCOMYCIN
     Route: 048
  3. VANCOMYCIN [Suspect]
     Active Substance: VANCOMYCIN
     Route: 048
  4. VANCOMYCIN [Suspect]
     Active Substance: VANCOMYCIN
  5. ANCEF [Concomitant]
     Active Substance: CEFAZOLIN SODIUM
     Indication: Antibiotic prophylaxis
  6. ANCEF [Concomitant]
     Active Substance: CEFAZOLIN SODIUM
     Route: 065
  7. ANCEF [Concomitant]
     Active Substance: CEFAZOLIN SODIUM
     Route: 065
  8. ANCEF [Concomitant]
     Active Substance: CEFAZOLIN SODIUM

REACTIONS (1)
  - Drug ineffective [Fatal]
